FAERS Safety Report 10058688 (Version 2)
Quarter: 2014Q2

REPORT INFORMATION
  Report Type: Spontaneous
  Country: DK (occurrence: None)
  Receive Date: 20140402
  Receipt Date: 20140408
  Transmission Date: 20141212
  Serious: Yes (Other)
  Sender: FDA-Public Use
  Company Number: 20140318

PATIENT
  Age: 34 Year
  Sex: Female

DRUGS (1)
  1. ALINIA [Suspect]
     Indication: NEMATODIASIS
     Route: 048

REACTIONS (2)
  - Maternal exposure during pregnancy [None]
  - Foetal death [None]
